FAERS Safety Report 9677435 (Version 1)
Quarter: 2013Q4

REPORT INFORMATION
  Report Type: Spontaneous
  Country: US (occurrence: US)
  Receive Date: 20131108
  Receipt Date: 20131108
  Transmission Date: 20140711
  Serious: No
  Sender: FDA-Public Use
  Company Number: US-ENDO PHARMACEUTICALS INC.-GLIM20120001

PATIENT
  Sex: Male

DRUGS (3)
  1. GLIMEPIRIDE TABLETS 2MG [Suspect]
     Indication: BLOOD GLUCOSE INCREASED
     Route: 048
     Dates: start: 201109, end: 201201
  2. ALCOHOL [Suspect]
  3. METFORMIN HYDROCHLORIDE TABLETS [Concomitant]
     Indication: BLOOD GLUCOSE INCREASED
     Dosage: UNKNOWN
     Route: 048

REACTIONS (1)
  - Drug effect decreased [Unknown]
